FAERS Safety Report 5710574-6 (Version None)
Quarter: 2008Q2

REPORT INFORMATION
  Report Type: 
  Country: None (occurrence: None)
  Receive Date: 20080415
  Receipt Date: 20080401
  Transmission Date: 20081010
  Serious: Yes (Hospitalization)
  Sender: FDA-Public Use
  Company Number: 080401-0000241

PATIENT
  Age: 4 Week
  Sex: Male
  Weight: 3.3113 kg

DRUGS (8)
  1. NEMBUTAL [Suspect]
     Indication: SEDATION
     Dosage: 10 MG;QD;PO; 0.2 ML;1X;PO
     Route: 048
     Dates: start: 20071220, end: 20071220
  2. NEMBUTAL [Suspect]
     Indication: SEDATION
     Dosage: 10 MG;QD;PO; 0.2 ML;1X;PO
     Route: 048
     Dates: start: 20071220, end: 20071220
  3. BIVALIRUDIN [Suspect]
     Indication: ANTICOAGULANT THERAPY
     Dosage: 2.5 MG; IVBOL; 1.75 MG/KG;QH;IV
     Route: 040
     Dates: start: 20071220, end: 20071220
  4. BIVALIRUDIN [Suspect]
     Indication: ANTICOAGULANT THERAPY
     Dosage: 2.5 MG; IVBOL; 1.75 MG/KG;QH;IV
     Route: 040
     Dates: start: 20071220, end: 20071220
  5. MORPHINE [Suspect]
     Indication: SEDATION
     Dosage: 1 MG;1X;PO
     Route: 048
     Dates: start: 20071220, end: 20071220
  6. VERSED [Suspect]
     Indication: SEDATION
     Dosage: 0.3 MG;QD;IV
     Route: 042
     Dates: start: 20071220, end: 20071220
  7. KETAMIN [Suspect]
     Indication: DRUG USE FOR UNKNOWN INDICATION
     Dosage: 0.3 MG;QD;IV
     Route: 042
     Dates: start: 20071220, end: 20071220
  8. PROSTAGLANDINS [Concomitant]

REACTIONS (6)
  - ATRIAL FLUTTER [None]
  - CONDITION AGGRAVATED [None]
  - HYPOTENSION [None]
  - OXYGEN SATURATION DECREASED [None]
  - PULMONARY VALVE STENOSIS [None]
  - SUPRAVENTRICULAR TACHYCARDIA [None]
